FAERS Safety Report 20632152 (Version 2)
Quarter: 2022Q2

REPORT INFORMATION
  Report Type: Spontaneous
  Country: FR (occurrence: FR)
  Receive Date: 20220324
  Receipt Date: 20220412
  Transmission Date: 20220721
  Serious: Yes (Other)
  Sender: FDA-Public Use
  Company Number: FR-NOVARTISPH-NVSC2022FR063646

PATIENT
  Sex: Male

DRUGS (1)
  1. COSENTYX [Suspect]
     Active Substance: SECUKINUMAB
     Indication: Product used for unknown indication
     Dosage: 300 MG (1 INJECTION)
     Route: 065

REACTIONS (3)
  - Dermatitis exfoliative generalised [Unknown]
  - Paradoxical drug reaction [Unknown]
  - Palmoplantar pustulosis [Unknown]
